FAERS Safety Report 6368751-X (Version None)
Quarter: 2009Q3

REPORT INFORMATION
  Report Type: 
  Country: None (occurrence: None)
  Receive Date: 20090916
  Receipt Date: 20090901
  Transmission Date: 20100115
  Serious: Yes (Hospitalization)
  Sender: FDA-Public Use
  Company Number: SPV1-2009-01775

PATIENT
  Sex: Male
  Weight: 131.5 kg

DRUGS (6)
  1. VYVANSE [Suspect]
     Indication: DRUG USE FOR UNKNOWN INDICATION
     Dosage: 50 MG, 1X/DAY:QD, ORAL
     Route: 048
     Dates: start: 20070101
  2. ADDERALL XR (AMFETAMINE ASPARTATE, AMFETAMINE SULFATE, DEXAMFETAMINE [Concomitant]
  3. CYCLOBENZAPRINE (CYCLOBENZAPRINE) TABLET [Concomitant]
  4. OXYCODONE (OXYCODONE) TABLET [Concomitant]
  5. ZOLPIDEM TARTRATE (ZOLPIDEM TARTRATE) TABLET [Concomitant]
  6. ATENOLOL [Concomitant]

REACTIONS (3)
  - ARACHNOID CYST [None]
  - CONDITION AGGRAVATED [None]
  - INTERVERTEBRAL DISC PROTRUSION [None]
